FAERS Safety Report 16432646 (Version 1)
Quarter: 2019Q2

REPORT INFORMATION
  Report Type: Spontaneous
  Country: US (occurrence: US)
  Receive Date: 20190614
  Receipt Date: 20190614
  Transmission Date: 20190711
  Serious: Yes (Other)
  Sender: FDA-Public Use
  Company Number: US-AMGEN-USASP2019091369

PATIENT
  Age: 77 Year
  Sex: Female

DRUGS (9)
  1. TUMS [Concomitant]
     Active Substance: CALCIUM CARBONATE
  2. TRIAMCINOLONE ACETONIDE. [Concomitant]
     Active Substance: TRIAMCINOLONE ACETONIDE
     Dosage: UNK (0.1%), AS NECESSARY
  3. AMOXICILLIN. [Concomitant]
     Active Substance: AMOXICILLIN
     Indication: INFLUENZA
  4. PROLIA [Suspect]
     Active Substance: DENOSUMAB
     Indication: PROPHYLAXIS
     Dosage: 60 MILLIGRAM
     Route: 065
     Dates: start: 201902
  5. VITAMIN B12 [Concomitant]
     Active Substance: CYANOCOBALAMIN
  6. TYLENOL [Concomitant]
     Active Substance: ACETAMINOPHEN
     Indication: PYREXIA
  7. BENADRYL [Concomitant]
     Active Substance: DIPHENHYDRAMINE HYDROCHLORIDE
     Dosage: 25 MILLIGRAM, AS NECESSARY (AT BEDTIME)
  8. VITAMIN D [ERGOCALCIFEROL] [Concomitant]
     Active Substance: ERGOCALCIFEROL
     Dosage: 5000 UNIT, QWK
  9. OXYCODONE [Concomitant]
     Active Substance: OXYCODONE
     Dosage: 15 MILLIGRAM (5 TO 6 TIMES DAILY)

REACTIONS (19)
  - Paraesthesia [Unknown]
  - Vulvovaginal pain [Unknown]
  - Adverse reaction [Unknown]
  - Ocular hyperaemia [Unknown]
  - Dyspnoea exertional [Unknown]
  - Oropharyngeal pain [Unknown]
  - Leser-Trelat sign [Unknown]
  - Scab [Unknown]
  - Pruritus [Unknown]
  - Urinary tract infection [Unknown]
  - Dizziness [Unknown]
  - Mole excision [Unknown]
  - Influenza [Unknown]
  - Mobility decreased [Unknown]
  - Peripheral swelling [Unknown]
  - Gait disturbance [Unknown]
  - Insomnia [Unknown]
  - Pain in extremity [Recovering/Resolving]
  - Erythema [Unknown]

NARRATIVE: CASE EVENT DATE: 2019
